FAERS Safety Report 7433928-9 (Version None)
Quarter: 2011Q2

REPORT INFORMATION
  Report Type: 
  Country: None (occurrence: None)
  Receive Date: 20110420
  Receipt Date: 20110420
  Transmission Date: 20111010
  Serious: No
  Sender: FDA-Public Use
  Company Number: None

PATIENT
  Age: 59 Year
  Weight: 100.6985 kg

DRUGS (6)
  1. ACETAMINOPHEN [Concomitant]
  2. AVANDIA [Suspect]
  3. COREG [Concomitant]
  4. DIOVAN [Concomitant]
  5. GLUCOPHAGE [Concomitant]
  6. CELEBREX [Concomitant]

REACTIONS (1)
  - LEGAL PROBLEM [None]
